FAERS Safety Report 12296112 (Version 1)
Quarter: 2016Q2

REPORT INFORMATION
  Report Type: Spontaneous
  Country: DK (occurrence: FR)
  Receive Date: 20160422
  Receipt Date: 20160422
  Transmission Date: 20160815
  Serious: Yes (Hospitalization)
  Sender: FDA-Public Use
  Company Number: FR-FRI-1000084060

PATIENT
  Age: 85 Year
  Sex: Male

DRUGS (21)
  1. TEMESTA [Suspect]
     Active Substance: LORAZEPAM
     Indication: DEPRESSION
     Dosage: 3.75 MG
     Route: 048
     Dates: end: 20160226
  2. ABILIFY [Suspect]
     Active Substance: ARIPIPRAZOLE
     Indication: PSYCHIATRIC SYMPTOM
     Dosage: 5 MG
     Route: 048
     Dates: end: 20160226
  3. PANTOPRAZOLE [Concomitant]
     Active Substance: PANTOPRAZOLE SODIUM
  4. ALLOPURINOL. [Concomitant]
     Active Substance: ALLOPURINOL
  5. UVEDOSE [Concomitant]
     Active Substance: CHOLECALCIFEROL
  6. VESICARE [Concomitant]
     Active Substance: SOLIFENACIN SUCCINATE
  7. LOPERAMIDE [Concomitant]
     Active Substance: LOPERAMIDE
  8. KARDEGIC [Concomitant]
     Active Substance: ASPIRIN LYSINE
  9. ESCITALOPRAM [Suspect]
     Active Substance: ESCITALOPRAM OXALATE
     Indication: PSYCHIATRIC SYMPTOM
     Dosage: 20 MG
     Route: 048
  10. TEGRETOL [Concomitant]
     Active Substance: CARBAMAZEPINE
  11. VENTOLIN [Concomitant]
     Active Substance: ALBUTEROL SULFATE
  12. DAFALGAN [Concomitant]
     Active Substance: ACETAMINOPHEN
  13. TOPALGIC LP [Concomitant]
     Active Substance: TRAMADOL
  14. FLODIL L.P. [Concomitant]
     Active Substance: FELODIPINE
  15. OMEXEL L.P. [Concomitant]
  16. BISOCE [Concomitant]
     Active Substance: BISOPROLOL
  17. AVODART [Concomitant]
     Active Substance: DUTASTERIDE
  18. DOMPERIDONE [Concomitant]
     Active Substance: DOMPERIDONE
  19. GARDENAL [Concomitant]
     Active Substance: PHENOBARBITAL
  20. INEGY [Concomitant]
     Active Substance: EZETIMIBE\SIMVASTATIN
     Dosage: 10 MG/40 MG
  21. SPASFON [Concomitant]
     Active Substance: PHLOROGLUCINOL

REACTIONS (3)
  - Somnolence [Recovered/Resolved]
  - Respiratory distress [Recovered/Resolved]
  - Fall [Recovered/Resolved]

NARRATIVE: CASE EVENT DATE: 20160224
